FAERS Safety Report 12287331 (Version 1)
Quarter: 2016Q2

REPORT INFORMATION
  Report Type: Spontaneous
  Country: US (occurrence: US)
  Receive Date: 20160420
  Receipt Date: 20160420
  Transmission Date: 20160815
  Serious: No
  Sender: FDA-Public Use
  Company Number: US-MDT-ADR-2016-00718

PATIENT
  Age: 58 Year
  Sex: Male

DRUGS (6)
  1. BACLOFEN. [Suspect]
     Active Substance: BACLOFEN
     Dosage: 731.7 MCG/DAY
     Route: 037
     Dates: start: 20160407
  2. BUPIVACAINE. [Suspect]
     Active Substance: BUPIVACAINE
     Dosage: 4.8782 MG/DAY
     Route: 037
     Dates: start: 20160407
  3. DILAUDID [Suspect]
     Active Substance: HYDROMORPHONE HYDROCHLORIDE
     Route: 048
  4. FENTANYL. [Suspect]
     Active Substance: FENTANYL
     Dosage: 609.8 MCG/DAY
     Route: 037
     Dates: start: 20160407
  5. CLONIDINE. [Suspect]
     Active Substance: CLONIDINE
     Dosage: 152.44 MCG/DAY
     Route: 037
     Dates: start: 20160407
  6. MORPHINE [Suspect]
     Active Substance: MORPHINE
     Dosage: 6.098 MG/DAY
     Route: 037
     Dates: start: 20160407

REACTIONS (2)
  - Back pain [Unknown]
  - Pain [Unknown]

NARRATIVE: CASE EVENT DATE: 20160407
